FAERS Safety Report 8995051 (Version 1)
Quarter: 2012Q4

REPORT INFORMATION
  Report Type: Spontaneous
  Country: US (occurrence: None)
  Receive Date: 20121228
  Receipt Date: 20121228
  Transmission Date: 20130627
  Serious: Yes (Life-Threatening)
  Sender: FDA-Public Use
  Company Number: None

PATIENT
  Age: 82 Year
  Sex: Male
  Weight: 73.1 kg

DRUGS (1)
  1. LEVOFLOXACIN [Suspect]
     Indication: DIABETES MELLITUS
     Dates: start: 20120607, end: 20120609

REACTIONS (1)
  - Hypoglycaemia [None]
